FAERS Safety Report 4519881-6 (Version None)
Quarter: 2004Q4

REPORT INFORMATION
  Report Type: 
  Country: None (occurrence: None)
  Receive Date: 20041201
  Receipt Date: 20041201
  Transmission Date: 20050328
  Serious: Yes (Life-Threatening, Hospitalization, Disabling)
  Sender: FDA-Public Use
  Company Number: None

PATIENT
  Age: 67 Year
  Sex: Male
  Weight: 90.7194 kg

DRUGS (14)
  1. PACERONE [Suspect]
     Indication: CARDIAC FAILURE CONGESTIVE
     Dosage: 800MG DAY ORAL
     Route: 048
     Dates: start: 20010710, end: 20040724
  2. PACERONE [Suspect]
     Indication: CARDIAC FAILURE CONGESTIVE
     Dosage: 400 MG DAY ORAL
     Route: 048
     Dates: start: 20010725, end: 20011130
  3. COREG [Concomitant]
  4. K-OUR [Concomitant]
  5. RANITIDINE [Concomitant]
  6. LEVANTHROID [Concomitant]
  7. CAPTOPRIL [Concomitant]
  8. FUROSMIDE [Concomitant]
  9. SPIRONALACTONE [Concomitant]
  10. PLAVIX [Concomitant]
  11. LORAZEPAM [Concomitant]
  12. TOMAZAPAM [Concomitant]
  13. LANOXIN [Concomitant]
  14. ASPIRIN [Concomitant]

REACTIONS (9)
  - ASTHENIA [None]
  - BEDRIDDEN [None]
  - DRUG TOXICITY [None]
  - DYSPNOEA [None]
  - EYE DISORDER [None]
  - LUNG DISORDER [None]
  - MUSCLE ATROPHY [None]
  - OXYGEN SATURATION DECREASED [None]
  - SCAR [None]
